FAERS Safety Report 7866143-5 (Version None)
Quarter: 2011Q4

REPORT INFORMATION
  Report Type: 
  Country: None (occurrence: None)
  Receive Date: 20111028
  Receipt Date: 20110429
  Transmission Date: 20120403
  Serious: No
  Sender: FDA-Public Use
  Company Number: US-GLAXOSMITHKLINE-A0925095A

PATIENT
  Age: 78 Year
  Sex: Male

DRUGS (16)
  1. ZYRTEC [Concomitant]
  2. SIMVASTATIN [Concomitant]
  3. METAMUCIL-2 [Concomitant]
  4. SPIRIVA [Concomitant]
  5. VENTOLIN HFA [Concomitant]
  6. ASPIRIN [Concomitant]
  7. CENTRUM SILVER [Concomitant]
  8. FLOMAX [Concomitant]
  9. OXYGEN [Concomitant]
  10. PULMICORT [Concomitant]
  11. BONIVA [Concomitant]
  12. PERFOROMIST [Concomitant]
  13. ADVAIR DISKUS 100/50 [Suspect]
     Indication: CHRONIC OBSTRUCTIVE PULMONARY DISEASE
     Dosage: 1PUFF TWICE PER DAY
     Route: 055
     Dates: start: 20110402
  14. FISH OIL [Concomitant]
  15. NEXIUM [Concomitant]
  16. CALCIUM CARBONATE [Concomitant]

REACTIONS (2)
  - PULMONARY FUNCTION TEST DECREASED [None]
  - PRODUCT QUALITY ISSUE [None]
